FAERS Safety Report 11315636 (Version 2)
Quarter: 2015Q3

REPORT INFORMATION
  Report Type: Report from Study
  Country: US (occurrence: US)
  Receive Date: 20150728
  Receipt Date: 20150905
  Transmission Date: 20151125
  Serious: No
  Sender: FDA-Public Use
  Company Number: PHEH2015US003666

PATIENT
  Sex: Male
  Weight: 129.25 kg

DRUGS (1)
  1. GILENYA [Suspect]
     Active Substance: FINGOLIMOD HYDROCHLORIDE
     Indication: MULTIPLE SCLEROSIS
     Dosage: 0.5 MG, QD
     Route: 048
     Dates: start: 20141216

REACTIONS (10)
  - Middle insomnia [Not Recovered/Not Resolved]
  - Anger [Recovering/Resolving]
  - Agitation [Recovering/Resolving]
  - Depression [Recovered/Resolved]
  - Disturbance in attention [Recovering/Resolving]
  - Abnormal dreams [Not Recovered/Not Resolved]
  - Erectile dysfunction [Recovering/Resolving]
  - Asthenia [Recovered/Resolved]
  - Headache [Recovered/Resolved]
  - Visual acuity reduced [Recovering/Resolving]
